FAERS Safety Report 6751888-0 (Version None)
Quarter: 2010Q2

REPORT INFORMATION
  Report Type: 
  Country: None (occurrence: None)
  Receive Date: 20100602
  Receipt Date: 20100525
  Transmission Date: 20101027
  Serious: Yes (Hospitalization)
  Sender: FDA-Public Use
  Company Number: ES-ASTRAZENECA-2010SE23713

PATIENT
  Age: 65 Year
  Sex: Male

DRUGS (6)
  1. MERONEM [Suspect]
     Indication: INFECTION
     Route: 042
     Dates: start: 20100420, end: 20100422
  2. MERONEM [Suspect]
     Route: 042
     Dates: start: 20100427, end: 20100428
  3. ZYVOXID [Suspect]
     Indication: INFECTION
     Route: 048
     Dates: start: 20100420, end: 20100422
  4. ZYVOXID [Suspect]
     Route: 048
     Dates: start: 20100426, end: 20100428
  5. NOLOTIL [Concomitant]
     Indication: PAIN
     Route: 042
     Dates: start: 20100426, end: 20100428
  6. ENOXAPARIN SODIUM [Concomitant]
     Indication: ANTICOAGULANT THERAPY
     Route: 051
     Dates: start: 20100420, end: 20100422

REACTIONS (2)
  - CEREBRAL HAEMORRHAGE [None]
  - THROMBOCYTOPENIA [None]
